FAERS Safety Report 5829205-X (Version None)
Quarter: 2008Q2

REPORT INFORMATION
  Report Type: 
  Country: None (occurrence: None)
  Receive Date: 20080601
  Receipt Date: 20080220
  Transmission Date: 20081010
  Serious: No
  Sender: FDA-Public Use
  Company Number: US200802004995

PATIENT
  Age: 64 Year
  Sex: Male

DRUGS (1)
  1. BYETTA [Suspect]
     Dosage: SUBCUTANEOUS
     Route: 058
     Dates: start: 20080220

REACTIONS (1)
  - INCORRECT DOSE ADMINISTERED [None]
